FAERS Safety Report 9683875 (Version 2)
Quarter: 2013Q4

REPORT INFORMATION
  Report Type: Spontaneous
  Country: US (occurrence: US)
  Receive Date: 20131112
  Receipt Date: 20131112
  Transmission Date: 20140711
  Serious: No
  Sender: FDA-Public Use
  Company Number: US-MALLINCKRODT-T201304291

PATIENT
  Age: 79 Year
  Sex: Female
  Weight: 45.35 kg

DRUGS (5)
  1. FENTANYL TRANSDERMAL SYSTEM [Suspect]
     Indication: PAIN
     Dosage: 75 UG/HR, ONE PATCH EVERY 72 HOURS
     Route: 062
  2. BACTRIM [Concomitant]
     Indication: URINARY TRACT INFECTION
     Dosage: UNK, QD
     Dates: start: 2003
  3. IRON [Concomitant]
     Indication: IRON DEFICIENCY
     Dosage: UNK, QD
     Dates: start: 2012
  4. PRILOSEC                           /00661201/ [Concomitant]
     Indication: GASTROINTESTINAL DISORDER
     Dosage: 3 TIMES WEEKLY
     Dates: start: 2011
  5. VICODIN [Concomitant]
     Indication: BREAKTHROUGH PAIN
     Dosage: 500 MG, PRN

REACTIONS (3)
  - Dyskinesia [Recovering/Resolving]
  - Nervousness [Recovering/Resolving]
  - Anxiety [Recovering/Resolving]
